FAERS Safety Report 6873523-3 (Version None)
Quarter: 2010Q3

REPORT INFORMATION
  Report Type: 
  Country: None (occurrence: None)
  Receive Date: 20100723
  Receipt Date: 20090128
  Transmission Date: 20110219
  Serious: No
  Sender: FDA-Public Use
  Company Number: US-PFIZER INC-2009161696

PATIENT
  Sex: Male
  Weight: 117.9 kg

DRUGS (3)
  1. CHANTIX [Suspect]
     Indication: SMOKING CESSATION THERAPY
     Dosage: UNK
     Dates: start: 20090106
  2. VITAMINS [Concomitant]
     Dosage: UNK
  3. PREVACID [Concomitant]
     Dosage: UNK

REACTIONS (2)
  - CONSTIPATION [None]
  - ERECTILE DYSFUNCTION [None]
